FAERS Safety Report 25444703 (Version 1)
Quarter: 2025Q2

REPORT INFORMATION
  Report Type: Other
  Country: GB (occurrence: GB)
  Receive Date: 20250617
  Receipt Date: 20250617
  Transmission Date: 20250716
  Serious: Yes (Other)
  Sender: MACLEODS
  Company Number: None

PATIENT

DRUGS (1)
  1. ARIPIPRAZOLE [Suspect]
     Active Substance: ARIPIPRAZOLE
     Indication: Personality disorder
     Dosage: 400MG MONTHLY LAI DEPOT
     Route: 065
     Dates: start: 202505

REACTIONS (1)
  - Hypoprolactinaemia [Unknown]

NARRATIVE: CASE EVENT DATE: 20250601
